FAERS Safety Report 19712667 (Version 1)
Quarter: 2021Q3

REPORT INFORMATION
  Report Type: Not Available
  Country: CO (occurrence: CO)
  Receive Date: 20210816
  Receipt Date: 20210816
  Transmission Date: 20211014
  Serious: Yes (Death, Hospitalization, Other)
  Sender: FDA-Public Use
  Company Number: CO-TEIKOKU PHARMA USA-TPU2021-00799

PATIENT
  Age: 62 Year
  Sex: Female

DRUGS (2)
  1. VERSATIS [Suspect]
     Active Substance: LIDOCAINE
     Indication: BACK PAIN
  2. VERSATIS [Suspect]
     Active Substance: LIDOCAINE
     Indication: PAIN
     Route: 061

REACTIONS (3)
  - Respiratory arrest [Fatal]
  - COVID-19 [Unknown]
  - Inappropriate schedule of product administration [Unknown]
